FAERS Safety Report 6490921-0 (Version None)
Quarter: 2009Q4

REPORT INFORMATION
  Report Type: 
  Country: None (occurrence: None)
  Receive Date: 20091211
  Receipt Date: 20091202
  Transmission Date: 20100525
  Serious: Yes (Hospitalization, Other)
  Sender: FDA-Public Use
  Company Number: JP-ELI_LILLY_AND_COMPANY-JP200912001318

PATIENT
  Age: 75 Year
  Sex: Female

DRUGS (2)
  1. GEMZAR [Suspect]
     Indication: GALLBLADDER CANCER
     Dosage: 800 MG, UNK
     Route: 042
     Dates: start: 20081101, end: 20090101
  2. TS 1 /JPN/ [Concomitant]
     Indication: GALLBLADDER CANCER
     Dosage: 80 MG, UNK
     Route: 048
     Dates: start: 20081101

REACTIONS (4)
  - HAEMOLYTIC ANAEMIA [None]
  - PANCYTOPENIA [None]
  - RENAL DISORDER [None]
  - THROMBOTIC MICROANGIOPATHY [None]
